FAERS Safety Report 17263344 (Version 1)
Quarter: 2020Q1

REPORT INFORMATION
  Report Type: Spontaneous
  Country: US (occurrence: US)
  Receive Date: 20200112
  Receipt Date: 20200112
  Transmission Date: 20200409
  Serious: No
  Sender: FDA-Public Use
  Company Number: None

PATIENT
  Age: 44 Year
  Sex: Female
  Weight: 60.75 kg

DRUGS (1)
  1. BLISTEX FRUIT SMOOTHIES [Suspect]
     Active Substance: DIMETHICONE\OCTINOXATE\OCTISALATE
     Indication: LIP DRY
     Route: 061
     Dates: start: 20200111, end: 20200111

REACTIONS (5)
  - Lip dry [None]
  - Lip swelling [None]
  - Chapped lips [None]
  - Lip pain [None]
  - Lip erythema [None]

NARRATIVE: CASE EVENT DATE: 20200111
